FAERS Safety Report 5763068-6 (Version None)
Quarter: 2008Q2

REPORT INFORMATION
  Report Type: 
  Country: None (occurrence: None)
  Receive Date: 20080609
  Receipt Date: 20080528
  Transmission Date: 20081010
  Serious: Yes (Hospitalization, Other)
  Sender: FDA-Public Use
  Company Number: AR-PFIZER INC-2008036426

PATIENT
  Sex: Female

DRUGS (4)
  1. ZELDOX (CAPSULES) [Suspect]
     Indication: PANIC DISORDER
     Route: 048
  2. ZELDOX (CAPSULES) [Suspect]
     Indication: ANOREXIA
  3. PAROXETINE HCL [Concomitant]
     Route: 048
     Dates: start: 20030101
  4. CLONAZEPAM [Concomitant]
     Route: 048
     Dates: start: 20030101

REACTIONS (4)
  - BREAST MASS [None]
  - CONVULSION [None]
  - SOMNOLENCE [None]
  - TREMOR [None]
